FAERS Safety Report 20240794 (Version 3)
Quarter: 2022Q1

REPORT INFORMATION
  Report Type: Spontaneous
  Country: CO (occurrence: CO)
  Receive Date: 20211228
  Receipt Date: 20220316
  Transmission Date: 20220423
  Serious: Yes (Hospitalization, Other)
  Sender: FDA-Public Use
  Company Number: CO-PFIZER INC-202101820633

PATIENT
  Age: 89 Year
  Sex: Female
  Weight: 78 kg

DRUGS (2)
  1. LYRICA [Suspect]
     Active Substance: PREGABALIN
     Indication: Mixed anxiety and depressive disorder
     Dosage: 150 MG,
     Route: 048
     Dates: start: 20210308
  2. LYRICA [Suspect]
     Active Substance: PREGABALIN
     Dosage: 150 MG, EVERY 24 HOURS
     Route: 048
     Dates: start: 20210417

REACTIONS (2)
  - Pneumonia [Recovered/Resolved]
  - Loss of consciousness [Not Recovered/Not Resolved]

NARRATIVE: CASE EVENT DATE: 20211109
